FAERS Safety Report 8360925-1 (Version None)
Quarter: 2012Q2

REPORT INFORMATION
  Report Type: 
  Country: None (occurrence: None)
  Receive Date: 20120515
  Receipt Date: 20120508
  Transmission Date: 20120825
  Serious: Yes (Hospitalization)
  Sender: FDA-Public Use
  Company Number: US-ASTRAZENECA-2012SE28077

PATIENT
  Age: 46 Year
  Sex: Female

DRUGS (7)
  1. NAPROXEN [Concomitant]
  2. ANTICOAGULANT [Concomitant]
  3. OXYCODONE HCL [Concomitant]
  4. PAIN MEDICATION [Concomitant]
  5. IRON [Concomitant]
  6. DIAZEPAM [Concomitant]
     Dosage: PRN
  7. NEXIUM [Suspect]
     Route: 048

REACTIONS (5)
  - MALAISE [None]
  - ANKLE FRACTURE [None]
  - GASTRITIS [None]
  - FUNGAL INFECTION [None]
  - HERNIA [None]
